FAERS Safety Report 7912043-1 (Version None)
Quarter: 2011Q4

REPORT INFORMATION
  Report Type: 
  Country: None (occurrence: None)
  Receive Date: 20111114
  Receipt Date: 20111103
  Transmission Date: 20120403
  Serious: Yes (Hospitalization)
  Sender: FDA-Public Use
  Company Number: US-ELI_LILLY_AND_COMPANY-US201110008116

PATIENT
  Age: 68 Year
  Sex: Female
  Weight: 44.09 kg

DRUGS (3)
  1. CISPLATIN [Suspect]
     Indication: CERVIX CARCINOMA
     Dosage: 50 MG/M2, DAY 1 EVERY 21 DAYS
     Route: 042
     Dates: start: 20110503
  2. PEMETREXED [Suspect]
     Indication: CERVIX CARCINOMA
     Dosage: 500 MG/M2, DAY 1 EVERY 21 DAYS
     Route: 042
     Dates: start: 20110503
  3. LOVENOX [Concomitant]

REACTIONS (6)
  - EMBOLISM [None]
  - COLONIC FISTULA [None]
  - HYPONATRAEMIA [None]
  - WHITE BLOOD CELL COUNT DECREASED [None]
  - PLATELET COUNT DECREASED [None]
  - HYPOALBUMINAEMIA [None]
